FAERS Safety Report 5321945-4 (Version None)
Quarter: 2007Q2

REPORT INFORMATION
  Report Type: 
  Country: None (occurrence: None)
  Receive Date: 20070511
  Receipt Date: 20070430
  Transmission Date: 20071010
  Serious: Yes (Other)
  Sender: FDA-Public Use
  Company Number: PHEH2007US06674

PATIENT

DRUGS (1)
  1. EXJADE [Suspect]

REACTIONS (1)
  - RENAL TUBULAR ACIDOSIS [None]
